FAERS Safety Report 4598603-7 (Version None)
Quarter: 2005Q1

REPORT INFORMATION
  Report Type: 
  Country: None (occurrence: None)
  Receive Date: 20050301
  Receipt Date: 20050301
  Transmission Date: 20050727
  Serious: Yes (Life-Threatening)
  Sender: FDA-Public Use
  Company Number: None

PATIENT
  Sex: Male

DRUGS (16)
  1. HEPARIN [Suspect]
     Indication: ANTICOAGULANT THERAPY
     Dosage: 5000 UNITS TID SUBCUTANEOUS
     Route: 058
     Dates: start: 20041030, end: 20041124
  2. ALBUTEROL/ IPRATROPIUM [Concomitant]
  3. BISACODYL [Concomitant]
  4. DOCUSATE [Concomitant]
  5. FENTANYL [Concomitant]
  6. INSULIN [Concomitant]
  7. MAGNESIUM SULFATE [Concomitant]
  8. MEROPENEM [Concomitant]
  9. METOCLOPRAMID [Concomitant]
  10. NEPHPLEX [Concomitant]
  11. NOREPINEPHRINE [Concomitant]
  12. PANTOPRAZOLE [Concomitant]
  13. PROSMASATE [Concomitant]
  14. PROPOFOL [Concomitant]
  15. SODIUM PHOSPHATE [Concomitant]
  16. VANCOMYCIN [Concomitant]

REACTIONS (1)
  - HEPARIN-INDUCED THROMBOCYTOPENIA [None]
